FAERS Safety Report 11364816 (Version 1)
Quarter: 2015Q3

REPORT INFORMATION
  Report Type: Spontaneous
  Country: US (occurrence: US)
  Receive Date: 20150811
  Receipt Date: 20150811
  Transmission Date: 20151125
  Serious: Yes (Other)
  Sender: FDA-Public Use
  Company Number: US-SA-2015SA117664

PATIENT
  Age: 74 Year
  Sex: Female

DRUGS (2)
  1. NASACORT ALLERGY 24HR [Suspect]
     Active Substance: TRIAMCINOLONE ACETONIDE
     Indication: UPPER-AIRWAY COUGH SYNDROME
     Dosage: FORM: NASAL SPRAY
     Route: 065
     Dates: start: 20150731, end: 20150801
  2. NASACORT ALLERGY 24HR [Suspect]
     Active Substance: TRIAMCINOLONE ACETONIDE
     Indication: NASAL DISCOMFORT
     Dosage: FORM: NASAL SPRAY
     Route: 065
     Dates: start: 20150731, end: 20150801

REACTIONS (4)
  - Pruritus [Unknown]
  - Throat tightness [Unknown]
  - Rash [Recovering/Resolving]
  - Swelling face [Recovering/Resolving]

NARRATIVE: CASE EVENT DATE: 20150801
